FAERS Safety Report 21301966 (Version 2)
Quarter: 2022Q3

REPORT INFORMATION
  Report Type: Report from Study
  Country: JP (occurrence: JP)
  Receive Date: 20220907
  Receipt Date: 20220909
  Transmission Date: 20221026
  Serious: Yes (Hospitalization, Other)
  Sender: FDA-Public Use
  Company Number: JP-CELGENE-JPN-20171206706

PATIENT
  Age: 60 Year
  Sex: Female

DRUGS (64)
  1. PACLITAXEL [Suspect]
     Active Substance: PACLITAXEL
     Indication: Triple negative breast cancer
     Route: 041
     Dates: start: 20171129, end: 20171129
  2. PACLITAXEL [Suspect]
     Active Substance: PACLITAXEL
     Route: 042
     Dates: end: 20180116
  3. ATEZOLIZUMAB [Suspect]
     Active Substance: ATEZOLIZUMAB
     Indication: Triple negative breast cancer
     Dosage: DATE OF MOST RECENT DOSE PRIOR TO EVENT ONSET ON 29/NOV/2017 AT 14:05 (840 ?MG,1 IN 2 WK)
     Route: 041
     Dates: start: 20171129
  4. ATEZOLIZUMAB [Suspect]
     Active Substance: ATEZOLIZUMAB
  5. REBAMIPIDE [Concomitant]
     Active Substance: REBAMIPIDE
     Indication: Constipation
     Route: 048
  6. REBAMIPIDE [Concomitant]
     Active Substance: REBAMIPIDE
     Indication: Prophylaxis
     Dates: start: 2002
  7. REBAMIPIDE [Concomitant]
     Active Substance: REBAMIPIDE
     Route: 065
     Dates: start: 20171114, end: 20171117
  8. REBAMIPIDE [Concomitant]
     Active Substance: REBAMIPIDE
     Route: 065
     Dates: start: 20180202, end: 20180214
  9. ZOLPIDEM TARTRATE [Concomitant]
     Active Substance: ZOLPIDEM TARTRATE
     Indication: Dehydration
     Dosage: 1) 500.0 MILLILITRE(S) (500 MILLILITRE(S), 1 IN 1 DAY)
     Route: 041
     Dates: start: 20171213
  10. ZOLPIDEM TARTRATE [Concomitant]
     Active Substance: ZOLPIDEM TARTRATE
     Indication: Insomnia
     Route: 041
     Dates: start: 20180201
  11. ZOLPIDEM TARTRATE [Concomitant]
     Active Substance: ZOLPIDEM TARTRATE
     Dates: start: 20180201
  12. ZOLPIDEM TARTRATE [Concomitant]
     Active Substance: ZOLPIDEM TARTRATE
     Route: 065
     Dates: start: 20171011
  13. ZOLPIDEM TARTRATE [Concomitant]
     Active Substance: ZOLPIDEM TARTRATE
     Route: 065
     Dates: start: 20171017
  14. VANCOMYCIN HYDROCHLORIDE [Concomitant]
     Active Substance: VANCOMYCIN HYDROCHLORIDE
     Indication: Dry eye
     Route: 047
     Dates: start: 20171216
  15. VANCOMYCIN HYDROCHLORIDE [Concomitant]
     Active Substance: VANCOMYCIN HYDROCHLORIDE
     Indication: Staphylococcal infection
     Route: 065
     Dates: start: 20171215, end: 20171220
  16. SODIUM GUALENATE MONOHYDRATE [Concomitant]
     Active Substance: SODIUM GUALENATE MONOHYDRATE
     Indication: Gastritis
     Route: 065
     Dates: start: 20171222
  17. SODIUM GUALENATE MONOHYDRATE [Concomitant]
     Active Substance: SODIUM GUALENATE MONOHYDRATE
     Indication: Stomatitis
     Route: 065
     Dates: start: 20171217
  18. SODIUM GUALENATE MONOHYDRATE [Concomitant]
     Active Substance: SODIUM GUALENATE MONOHYDRATE
     Indication: Ulcer
  19. ACYCLOVIR [Concomitant]
     Active Substance: ACYCLOVIR
     Route: 041
  20. ACYCLOVIR [Concomitant]
     Active Substance: ACYCLOVIR
     Dates: start: 20180201
  21. CALCIUM CHLORIDE\POTASSIUM CHLORIDE\SODIUM ACETATE\SODIUM CHLORIDE [Concomitant]
     Active Substance: CALCIUM CHLORIDE\POTASSIUM CHLORIDE\SODIUM ACETATE\SODIUM CHLORIDE
     Indication: Insomnia
     Route: 048
     Dates: start: 20180131
  22. CALCIUM CHLORIDE\POTASSIUM CHLORIDE\SODIUM ACETATE\SODIUM CHLORIDE [Concomitant]
     Active Substance: CALCIUM CHLORIDE\POTASSIUM CHLORIDE\SODIUM ACETATE\SODIUM CHLORIDE
     Indication: Product used for unknown indication
     Route: 065
     Dates: start: 20180201, end: 20180201
  23. CALCIUM GLUCONATE\DEXTROSE\MAGNESIUM CHLORIDE\POTASSIUM CHLORIDE\SODIU [Concomitant]
     Active Substance: CALCIUM GLUCONATE\DEXTROSE\MAGNESIUM CHLORIDE\POTASSIUM CHLORIDE\SODIUM ACETATE\SODIUM CHLORIDE\TRIS
     Indication: Nausea
     Dosage: 1) 3.3 MILLIGRAM(S) (3.3 MILLIGRAM(S), 1 IN 1 DAY)
     Route: 042
     Dates: start: 20180201, end: 20180201
  24. CALCIUM GLUCONATE\DEXTROSE\MAGNESIUM CHLORIDE\POTASSIUM CHLORIDE\SODIU [Concomitant]
     Active Substance: CALCIUM GLUCONATE\DEXTROSE\MAGNESIUM CHLORIDE\POTASSIUM CHLORIDE\SODIUM ACETATE\SODIUM CHLORIDE\TRIS
     Indication: Illness
  25. CALCIUM GLUCONATE\DEXTROSE\MAGNESIUM CHLORIDE\POTASSIUM CHLORIDE\SODIU [Concomitant]
     Active Substance: CALCIUM GLUCONATE\DEXTROSE\MAGNESIUM CHLORIDE\POTASSIUM CHLORIDE\SODIUM ACETATE\SODIUM CHLORIDE\TRIS
     Indication: Product used for unknown indication
  26. REMIFENTANIL HYDROCHLORIDE [Concomitant]
     Active Substance: REMIFENTANIL HYDROCHLORIDE
     Indication: Hypotonia
     Route: 042
     Dates: start: 20180201, end: 20180201
  27. REMIFENTANIL HYDROCHLORIDE [Concomitant]
     Active Substance: REMIFENTANIL HYDROCHLORIDE
     Indication: Analgesic therapy
  28. ROCURONIUM BROMIDE [Concomitant]
     Active Substance: ROCURONIUM BROMIDE
     Indication: Anaesthesia procedure
     Route: 042
     Dates: start: 20180201, end: 20180201
  29. ROCURONIUM BROMIDE [Concomitant]
     Active Substance: ROCURONIUM BROMIDE
     Indication: Muscle relaxant therapy
  30. PROPOFOL [Concomitant]
     Active Substance: PROPOFOL
     Indication: Procedural pain
     Route: 042
     Dates: start: 20180201, end: 20180201
  31. PROPOFOL [Concomitant]
     Active Substance: PROPOFOL
     Indication: Anaesthesia
  32. ACETAMINOPHEN [Concomitant]
     Active Substance: ACETAMINOPHEN
     Indication: Product used for unknown indication
     Dosage: 1) (1 IN 2 WEEK)
     Route: 065
  33. ACETAMINOPHEN [Concomitant]
     Active Substance: ACETAMINOPHEN
     Route: 042
     Dates: start: 20180201
  34. DOXORUBICIN [Concomitant]
     Active Substance: DOXORUBICIN
     Indication: Triple negative breast cancer
     Dosage: 1) (1 IN 2 WEEK)
     Route: 065
  35. CYCLOPHOSPHAMIDE [Concomitant]
     Active Substance: CYCLOPHOSPHAMIDE
     Indication: Triple negative breast cancer
     Route: 048
  36. CYCLOPHOSPHAMIDE [Concomitant]
     Active Substance: CYCLOPHOSPHAMIDE
     Dates: start: 20180131
  37. FOSFOMYCIN SODIUM [Concomitant]
     Active Substance: FOSFOMYCIN SODIUM
     Indication: Pain prophylaxis
     Route: 042
     Dates: start: 20180201
  38. FLURBIPROFEN AXETIL [Concomitant]
     Active Substance: FLURBIPROFEN AXETIL
     Indication: Pain prophylaxis
     Route: 030
     Dates: start: 20180201
  39. DROPERIDOL [Concomitant]
     Active Substance: DROPERIDOL
     Indication: Pain prophylaxis
     Route: 065
     Dates: start: 20180201, end: 20180201
  40. DROPERIDOL [Concomitant]
     Active Substance: DROPERIDOL
  41. TRAMADOL [Concomitant]
     Active Substance: TRAMADOL
  42. TRAMADOL [Concomitant]
     Active Substance: TRAMADOL
     Indication: Product used for unknown indication
     Route: 065
     Dates: start: 20180201
  43. FENTANYL CITRATE [Concomitant]
     Active Substance: FENTANYL CITRATE
     Indication: Pain prophylaxis
     Route: 065
     Dates: start: 20180201, end: 20180201
  44. CEFDINIR [Concomitant]
     Active Substance: CEFDINIR
  45. CEFDINIR [Concomitant]
     Active Substance: CEFDINIR
     Indication: Infection prophylaxis
     Route: 065
     Dates: start: 20171114, end: 20171116
  46. OHTA^S ISAN [Concomitant]
     Indication: Constipation
     Route: 065
  47. SODIUM HYALURONATE [Concomitant]
     Active Substance: HYALURONATE SODIUM
     Indication: Dry eye
     Route: 065
     Dates: start: 20171216, end: 20180228
  48. LOXOPROFEN SODIUM DIHYDRATE [Concomitant]
     Active Substance: LOXOPROFEN SODIUM DIHYDRATE
     Indication: Pain prophylaxis
     Route: 065
     Dates: start: 20180202, end: 20180214
  49. LOXOPROFEN SODIUM DIHYDRATE [Concomitant]
     Active Substance: LOXOPROFEN SODIUM DIHYDRATE
     Route: 065
     Dates: start: 20171114, end: 20171117
  50. DECADRON (DEXAMETHASONE SODIUM PHOSPHATE) [Concomitant]
     Active Substance: DEXAMETHASONE SODIUM PHOSPHATE
     Indication: Illness
     Dosage: 3.3 MG
     Route: 042
     Dates: start: 20180201, end: 20180201
  51. DECADRON (DEXAMETHASONE SODIUM PHOSPHATE) [Concomitant]
     Active Substance: DEXAMETHASONE SODIUM PHOSPHATE
     Indication: Nausea
  52. URSODIOL [Concomitant]
     Active Substance: URSODIOL
     Indication: Hepatic function abnormal
     Route: 065
     Dates: start: 20171216, end: 20171224
  53. AMMONIUM GLYCYRRHIZATE [Concomitant]
     Active Substance: AMMONIUM GLYCYRRHIZATE
     Indication: Hepatic function abnormal
     Route: 065
     Dates: start: 20171216
  54. FAMOTIDINE [Concomitant]
     Active Substance: FAMOTIDINE
     Indication: Gastritis
     Route: 065
     Dates: start: 20171215, end: 20171221
  55. GLYCYRRHIZIN [Concomitant]
     Active Substance: GLYCYRRHIZIN
     Indication: Hepatic function abnormal
     Route: 042
     Dates: start: 20171221, end: 20171224
  56. PREDNISOLONE SODIUM PHOSPHATE [Concomitant]
     Active Substance: PREDNISOLONE SODIUM PHOSPHATE
     Indication: Product used for unknown indication
     Route: 048
     Dates: start: 20171215, end: 20171228
  57. Naveen D [Concomitant]
     Indication: Product used for unknown indication
     Dosage: FREQUENCY TEXT: NOT PROVIDED?500 MILLILITER
     Route: 065
     Dates: start: 20171211
  58. ESOMEPRAZOLE MAGNESIUM [Concomitant]
     Active Substance: ESOMEPRAZOLE MAGNESIUM
     Indication: Gastritis
     Route: 065
     Dates: start: 20171222
  59. POTASSIUM ASPARTATE ANHYDROUS [Concomitant]
     Active Substance: POTASSIUM ASPARTATE ANHYDROUS
     Indication: Hypokalaemia
     Route: 065
     Dates: start: 20171222, end: 20171226
  60. ACYCLOVIR [Concomitant]
     Active Substance: ACYCLOVIR
     Indication: Herpes virus infection
     Route: 065
     Dates: start: 20171228, end: 20180117
  61. SENNOSIDES [Concomitant]
     Active Substance: SENNOSIDES
     Indication: Product used for unknown indication
     Route: 065
     Dates: start: 20180131, end: 20180131
  62. BROTIZOLAM [Concomitant]
     Active Substance: BROTIZOLAM
     Indication: Insomnia
     Route: 065
     Dates: start: 20180131, end: 20180131
  63. FLURBIPROFEN AXETIL [Concomitant]
     Active Substance: FLURBIPROFEN AXETIL
     Indication: Pain prophylaxis
     Route: 065
     Dates: start: 20180201, end: 20180201
  64. TRAMADOL HYDROCHLORIDE [Concomitant]
     Active Substance: TRAMADOL HYDROCHLORIDE
     Indication: Pain prophylaxis
     Route: 065
     Dates: start: 20180201, end: 20180201

REACTIONS (2)
  - Febrile neutropenia [Recovered/Resolved]
  - Hepatic function abnormal [Recovered/Resolved]

NARRATIVE: CASE EVENT DATE: 20171211
